FAERS Safety Report 5830614-3 (Version None)
Quarter: 2008Q3

REPORT INFORMATION
  Report Type: 
  Country: None (occurrence: None)
  Receive Date: 20080801
  Receipt Date: 20070816
  Transmission Date: 20090109
  Serious: No
  Sender: FDA-Public Use
  Company Number: US-BRISTOL-MYERS SQUIBB COMPANY-13880455

PATIENT
  Age: 83 Year
  Sex: Male
  Weight: 67 kg

DRUGS (7)
  1. COUMADIN [Suspect]
     Indication: TACHYCARDIA
     Dosage: THREE 2 MG TABS PER DAY ON MON AND THUR. TWO 2MG TABS ON THE REMAINING DAYS.
     Route: 048
  2. LEVOTHYROXINE SODIUM [Concomitant]
  3. ZETIA [Concomitant]
  4. BENICAR [Concomitant]
  5. TOPROL-XL [Concomitant]
  6. POTASSIUM CHLORIDE [Concomitant]
  7. FOLGARD [Concomitant]

REACTIONS (4)
  - ASTHENIA [None]
  - DIZZINESS [None]
  - INTERNATIONAL NORMALISED RATIO INCREASED [None]
  - RASH [None]
